FAERS Safety Report 6297179-6 (Version None)
Quarter: 2009Q3

REPORT INFORMATION
  Report Type: 
  Country: None (occurrence: None)
  Receive Date: 20090805
  Receipt Date: 20090727
  Transmission Date: 20100115
  Serious: Yes (Hospitalization)
  Sender: FDA-Public Use
  Company Number: US-BIOGENIDEC-2009BI023148

PATIENT
  Age: 49 Year
  Sex: Female
  Weight: 83 kg

DRUGS (3)
  1. AVONEX [Suspect]
     Indication: MULTIPLE SCLEROSIS
     Route: 030
  2. AVONEX [Suspect]
     Route: 030
     Dates: start: 20080301
  3. PREDNISONE [Concomitant]
     Indication: PREMEDICATION

REACTIONS (10)
  - ABASIA [None]
  - ASTHENIA [None]
  - GAIT DISTURBANCE [None]
  - HYPOAESTHESIA [None]
  - MIGRAINE [None]
  - MOOD SWINGS [None]
  - PAIN [None]
  - PNEUMONIA [None]
  - SLEEP DISORDER [None]
  - URINARY INCONTINENCE [None]
